FAERS Safety Report 24142826 (Version 1)
Quarter: 2024Q3

REPORT INFORMATION
  Report Type: Spontaneous
  Country: US (occurrence: US)
  Receive Date: 20240726
  Receipt Date: 20240726
  Transmission Date: 20241017
  Serious: No
  Sender: GREER
  Company Number: US-GREER Laboratories, Inc.-2159667

PATIENT
  Age: 32 Year
  Sex: Female
  Weight: 159.55 kg

DRUGS (25)
  1. STANDARDIZED MITE MIX [Suspect]
     Active Substance: DERMATOPHAGOIDES FARINAE\DERMATOPHAGOIDES PTERONYSSINUS
     Indication: Immune tolerance induction
     Route: 058
     Dates: start: 20240315
  2. BLACK WILLOW POLLEN [Suspect]
     Active Substance: SALIX NIGRA POLLEN
     Route: 058
     Dates: start: 20240315
  3. CEPHALEXIN [Concomitant]
     Active Substance: CEPHALEXIN
     Route: 048
     Dates: end: 20240317
  4. ALBUTEROL [Concomitant]
     Active Substance: ALBUTEROL
  5. EPIPEN [Concomitant]
     Active Substance: EPINEPHRINE
     Route: 030
  6. ERGOCALCIFEROL [Concomitant]
     Active Substance: ERGOCALCIFEROL
     Route: 048
  7. BACLOFEN [Concomitant]
     Active Substance: BACLOFEN
  8. IBUPROFEN [Concomitant]
     Active Substance: IBUPROFEN
     Route: 048
  9. SINGULAIR [Concomitant]
     Active Substance: MONTELUKAST SODIUM
     Route: 048
  10. AZELASTINE. [Concomitant]
     Active Substance: AZELASTINE HYDROCHLORIDE
     Route: 045
  11. ACYCLOVIR [Concomitant]
     Active Substance: ACYCLOVIR
     Route: 048
  12. ALBUTEROL [Concomitant]
     Active Substance: ALBUTEROL
     Route: 055
  13. GABAPENTIN [Concomitant]
     Active Substance: GABAPENTIN
  14. PANTOPRAZOLE SODIUM [Concomitant]
     Active Substance: PANTOPRAZOLE SODIUM
     Route: 048
  15. CLINDAMYCIN [Concomitant]
     Active Substance: CLINDAMYCIN
     Route: 067
  16. PENICILLIUM CHRYSOGENUM VAR CHRYSOGENUM [Suspect]
     Active Substance: PENICILLIUM CHRYSOGENUM VAR. CHRYSOGENUM
     Route: 058
     Dates: start: 20240315
  17. BOTRYTIS CINEREA [Suspect]
     Active Substance: BOTRYTIS CINEREA
     Route: 058
     Dates: start: 20240315
  18. 2 COCKROACH MIX [Suspect]
     Active Substance: BLATTELLA GERMANICA\PERIPLANETA AMERICANA
     Route: 058
     Dates: start: 20240315
  19. DOG EPITHELIA [Suspect]
     Active Substance: CANIS LUPUS FAMILIARIS SKIN
     Route: 058
     Dates: start: 20240315
  20. HORSE EPITHELIA [Suspect]
     Active Substance: EQUUS CABALLUS SKIN
     Route: 058
     Dates: start: 20240315
  21. MOUSE EPITHELIA [Suspect]
     Active Substance: MUS MUSCULUS SKIN
     Route: 058
     Dates: start: 20240315
  22. JOHNSON GRASS POLLEN [Suspect]
     Active Substance: SORGHUM HALEPENSE POLLEN
     Route: 058
     Dates: start: 20240315
  23. SHAGBARK HICKORY POLLEN [Suspect]
     Active Substance: CARYA OVATA POLLEN
     Route: 058
     Dates: start: 20240315
  24. HACKBERRY POLLEN [Suspect]
     Active Substance: CELTIS OCCIDENTALIS POLLEN
     Route: 058
     Dates: start: 20240315
  25. EASTERN COTTONWOOD POLLEN [Suspect]
     Active Substance: POPULUS DELTOIDES POLLEN
     Route: 058
     Dates: start: 20240315

REACTIONS (4)
  - Pruritus [Recovered/Resolved]
  - Injection site rash [Recovered/Resolved]
  - Dyspnoea [Recovered/Resolved]
  - Wheezing [Recovered/Resolved]

NARRATIVE: CASE EVENT DATE: 20240315
